FAERS Safety Report 15390784 (Version 1)
Quarter: 2018Q3

REPORT INFORMATION
  Report Type: Spontaneous
  Country: US (occurrence: US)
  Receive Date: 20180917
  Receipt Date: 20180917
  Transmission Date: 20181010
  Serious: Yes (Other)
  Sender: FDA-Public Use
  Company Number: US-SA-2018SA122710

PATIENT
  Age: 60 Year
  Sex: Female
  Weight: 64 kg

DRUGS (4)
  1. NEOSAR [Concomitant]
     Active Substance: CYCLOPHOSPHAMIDE
     Dosage: 1070 MG
  2. TAXOTERE [Suspect]
     Active Substance: DOCETAXEL
     Indication: BREAST CANCER FEMALE
     Dosage: 134 MG, Q3W
     Route: 042
     Dates: start: 20110405, end: 20110405
  3. PROTONIX [OMEPRAZOLE] [Concomitant]
     Dosage: UNK
     Dates: start: 20040101
  4. TAXOTERE [Suspect]
     Active Substance: DOCETAXEL
     Dosage: 134 MG, Q3W
     Route: 042
     Dates: start: 20110607, end: 20110607

REACTIONS (1)
  - Alopecia [Recovering/Resolving]

NARRATIVE: CASE EVENT DATE: 20110410
